FAERS Safety Report 8522038 (Version 2)
Quarter: 2013Q3

REPORT INFORMATION
  Report Type: Spontaneous
  Country: US (occurrence: US)
  Receive Date: 20120419
  Receipt Date: 20130826
  Transmission Date: 20140515
  Serious: Yes (Disabling, Other)
  Sender: FDA-Public Use
  Company Number: US-ASTRAZENECA-2012SE23693

PATIENT
  Age: 78 Year
  Sex: Female
  Weight: 65.8 kg

DRUGS (4)
  1. NEXIUM [Suspect]
     Indication: GASTROOESOPHAGEAL REFLUX DISEASE
     Route: 048
     Dates: start: 2008
  2. LISINOPRIL [Suspect]
     Indication: HYPERTENSION
     Route: 048
     Dates: start: 2003
  3. LEVEMIR FLEX PEN [Concomitant]
     Indication: TYPE 2 DIABETES MELLITUS
     Dosage: 12 U EVERY NIGHT
     Route: 058
     Dates: start: 2010
  4. ASPIRIN [Concomitant]
     Indication: ARTHRITIS
     Dosage: 325 MG 5/DAY
     Route: 048
     Dates: start: 1973

REACTIONS (3)
  - Blindness [Not Recovered/Not Resolved]
  - Retinal vein occlusion [Unknown]
  - Intentional drug misuse [Unknown]
